FAERS Safety Report 10958392 (Version 1)
Quarter: 2015Q1

REPORT INFORMATION
  Report Type: Spontaneous
  Country: US (occurrence: US)
  Receive Date: 20150326
  Receipt Date: 20150326
  Transmission Date: 20150721
  Serious: Yes (Life-Threatening, Hospitalization, Other)
  Sender: FDA-Public Use
  Company Number: US-GLAXOSMITHKLINE-US2015GSK039823

PATIENT
  Age: 78 Year
  Sex: Female

DRUGS (1)
  1. PROPAFENONE. [Suspect]
     Active Substance: PROPAFENONE
     Dosage: 150 MG, UNK
     Route: 048

REACTIONS (9)
  - Sinus arrest [Recovering/Resolving]
  - Cardiac arrest [Recovering/Resolving]
  - Nausea [Unknown]
  - Loss of consciousness [Unknown]
  - Toxicity to various agents [Unknown]
  - Dizziness [Unknown]
  - Malaise [Unknown]
  - Atrial fibrillation [Unknown]
  - Syncope [Unknown]
